FAERS Safety Report 21556058 (Version 1)
Quarter: 2022Q4

REPORT INFORMATION
  Report Type: Spontaneous
  Country: CN (occurrence: CN)
  Receive Date: 20221104
  Receipt Date: 20221104
  Transmission Date: 20230113
  Serious: Yes (Hospitalization, Other)
  Sender: FDA-Public Use
  Company Number: None

PATIENT
  Age: 21 Year
  Sex: Male
  Weight: 53 kg

DRUGS (8)
  1. CYCLOPHOSPHAMIDE [Suspect]
     Active Substance: CYCLOPHOSPHAMIDE
     Indication: Lymphoma
     Dosage: 1300 MG, QD (DILUTED WITH 0.9% SODIUM CHLORIDE 500 ML)
     Route: 041
     Dates: start: 20220924, end: 20220924
  2. SODIUM CHLORIDE [Suspect]
     Active Substance: SODIUM CHLORIDE
     Indication: Medication dilution
     Dosage: 500 ML, QD (USED TO DILUTE CYCLOPHOSPHAMIDE 1300 MG)
     Route: 041
     Dates: start: 20220924, end: 20220924
  3. SODIUM CHLORIDE [Suspect]
     Active Substance: SODIUM CHLORIDE
     Dosage: 500 ML, QD (USED TO DILUTE ETOPOSIDE 0.17 G)
     Route: 041
     Dates: start: 20220924, end: 20220924
  4. SODIUM CHLORIDE [Suspect]
     Active Substance: SODIUM CHLORIDE
     Dosage: 100 ML, QD (USED TO DILUTE VINCRISTINE SULFATE 2 MG)
     Route: 041
     Dates: start: 20220924, end: 20220924
  5. DEXTROSE MONOHYDRATE [Suspect]
     Active Substance: DEXTROSE MONOHYDRATE
     Indication: Medication dilution
     Dosage: 500 ML, QD (USED TO DILUTE PIRARUBICIN HYDROCHLORIDE 60 MG)
     Route: 041
     Dates: start: 20220924, end: 20220924
  6. ETOPOSIDE [Suspect]
     Active Substance: ETOPOSIDE
     Indication: Lymphoma
     Dosage: 0.17 G, QD (DILUTED WITH 0.9% SODIUM CHLORIDE 500 ML)
     Route: 041
     Dates: start: 20220924, end: 20220924
  7. PIRARUBICIN HYDROCHLORIDE [Suspect]
     Active Substance: PIRARUBICIN HYDROCHLORIDE
     Indication: Lymphoma
     Dosage: 60 MG, QD (DILUTED WITH GLUCOSE 500 ML)
     Route: 041
     Dates: start: 20220924, end: 20220924
  8. VINCRISTINE SULFATE [Suspect]
     Active Substance: VINCRISTINE SULFATE
     Indication: Lymphoma
     Dosage: 2 MG, QD (DILUTED WITH 0.9% SODIUM CHLORIDE 100 ML)
     Route: 041
     Dates: start: 20220924, end: 20220924

REACTIONS (1)
  - Granulocytopenia [Recovering/Resolving]

NARRATIVE: CASE EVENT DATE: 20221013
